FAERS Safety Report 6209415-2 (Version None)
Quarter: 2009Q2

REPORT INFORMATION
  Report Type: 
  Country: None (occurrence: None)
  Receive Date: 20090601
  Receipt Date: 20090528
  Transmission Date: 20091009
  Serious: Yes (Hospitalization)
  Sender: FDA-Public Use
  Company Number: AT-WYE-G03755409

PATIENT
  Age: 69 Year
  Sex: Female

DRUGS (1)
  1. TYGACIL [Suspect]
     Indication: PERITONITIS
     Dosage: 150 MG PER DAY

REACTIONS (1)
  - SEPSIS [None]
